FAERS Safety Report 6273242-0 (Version None)
Quarter: 2009Q3

REPORT INFORMATION
  Report Type: 
  Country: None (occurrence: None)
  Receive Date: 20090720
  Receipt Date: 20090710
  Transmission Date: 20100115
  Serious: Yes (Hospitalization, Other)
  Sender: FDA-Public Use
  Company Number: US-AMGEN-QUU351724

PATIENT
  Sex: Male
  Weight: 67.6 kg

DRUGS (8)
  1. ENBREL [Suspect]
     Indication: PSORIASIS
     Route: 058
     Dates: start: 20051011
  2. PREDNISONE [Concomitant]
     Route: 048
     Dates: start: 20080415
  3. PYRIDOSTIGMINE BROMIDE [Concomitant]
     Route: 048
     Dates: start: 20080506
  4. SIMVASTATIN [Concomitant]
     Route: 048
     Dates: start: 20070711
  5. BISOPROLOL FUMARATE [Concomitant]
     Route: 048
     Dates: start: 20050223
  6. IMURAN [Concomitant]
     Dates: start: 20090619
  7. VITAMIN D [Concomitant]
     Dates: start: 20090204
  8. UNSPECIFIED MEDICATION [Concomitant]
     Dates: start: 20090218

REACTIONS (23)
  - ALTERED VISUAL DEPTH PERCEPTION [None]
  - ASTHENIA [None]
  - CERVICAL MYELOPATHY [None]
  - COGNITIVE DISORDER [None]
  - COLONIC POLYP [None]
  - DIVERTICULITIS [None]
  - DIZZINESS [None]
  - ESSENTIAL TREMOR [None]
  - FALL [None]
  - GASTROINTESTINAL DISORDER [None]
  - HYPERHIDROSIS [None]
  - HYPOTENSION [None]
  - INJECTION SITE HAEMATOMA [None]
  - INJECTION SITE PAIN [None]
  - LACRIMATION INCREASED [None]
  - MYASTHENIA GRAVIS [None]
  - NIGHT BLINDNESS [None]
  - PSORIASIS [None]
  - RESTLESS LEGS SYNDROME [None]
  - STRESS [None]
  - TINNITUS [None]
  - URINARY HESITATION [None]
  - VISION BLURRED [None]
